FAERS Safety Report 18973566 (Version 1)
Quarter: 2021Q1

REPORT INFORMATION
  Report Type: Spontaneous
  Country: US (occurrence: US)
  Receive Date: 20210305
  Receipt Date: 20210305
  Transmission Date: 20210420
  Serious: No
  Sender: FDA-Public Use
  Company Number: US-GLAXOSMITHKLINE-US2021057135

PATIENT
  Age: 68 Year
  Sex: Female

DRUGS (1)
  1. SORIATANE [Suspect]
     Active Substance: ACITRETIN
     Indication: PSORIASIS
     Dosage: 25 MG, BID
     Route: 048
     Dates: start: 202009

REACTIONS (10)
  - Skin fissures [Unknown]
  - Alopecia [Unknown]
  - Herpes zoster [Recovered/Resolved]
  - Skin exfoliation [Unknown]
  - Nail disorder [Unknown]
  - Onychoclasis [Unknown]
  - Trichorrhexis [Unknown]
  - Psoriasis [Unknown]
  - Scar [Unknown]
  - Intentional underdose [Unknown]

NARRATIVE: CASE EVENT DATE: 20210115
